FAERS Safety Report 8833034 (Version 1)
Quarter: 2012Q4

REPORT INFORMATION
  Report Type: 
  Country: US (occurrence: US)
  Receive Date: 20121010
  Receipt Date: 20121010
  Transmission Date: 20130627
  Serious: No
  Sender: FDA-Public Use
  Company Number: US-009507513-1210USA001546

PATIENT
  Sex: Female

DRUGS (2)
  1. REBETOL [Suspect]
     Indication: HEPATITIS C
     Dosage: UNK, bid
     Dates: start: 20100301, end: 20110201
  2. INTERFERON (UNSPECIFIED) [Suspect]
     Indication: HEPATITIS C
     Dosage: UNK UNK, qw
     Dates: start: 20100301, end: 20110201

REACTIONS (1)
  - Drug ineffective [Unknown]
